FAERS Safety Report 5563526-3 (Version None)
Quarter: 2007Q4

REPORT INFORMATION
  Report Type: 
  Country: None (occurrence: None)
  Receive Date: 20071217
  Receipt Date: 20070925
  Transmission Date: 20080405
  Serious: Yes (Other)
  Sender: FDA-Public Use
  Company Number: US-ASTRAZENECA-2007UW15048

PATIENT
  Age: 45 Year
  Sex: Male

DRUGS (6)
  1. CRESTOR [Suspect]
     Indication: BLOOD CHOLESTEROL INCREASED
     Route: 048
     Dates: start: 20061201, end: 20070401
  2. CRESTOR [Suspect]
     Route: 048
     Dates: start: 20070608
  3. ASPIRIN [Concomitant]
  4. BENICAR [Concomitant]
     Indication: HYPERTENSION
     Dates: start: 20061201
  5. OMEGA 3 [Concomitant]
  6. VITAMIN CAP [Concomitant]

REACTIONS (1)
  - BLOOD CREATINE PHOSPHOKINASE INCREASED [None]
